FAERS Safety Report 13531890 (Version 1)
Quarter: 2017Q2

REPORT INFORMATION
  Report Type: Spontaneous
  Country: US (occurrence: US)
  Receive Date: 20170510
  Receipt Date: 20170510
  Transmission Date: 20170830
  Serious: Yes (Hospitalization)
  Sender: FDA-Public Use
  Company Number: None

PATIENT
  Age: 65 Year
  Sex: Male
  Weight: 260 kg

DRUGS (1)
  1. WARFARIN [Suspect]
     Active Substance: WARFARIN
     Indication: ATRIAL FIBRILLATION
     Route: 048
     Dates: start: 20120813

REACTIONS (7)
  - Therapy cessation [None]
  - Haematochezia [None]
  - Haemorrhage [None]
  - Gastric haemorrhage [None]
  - International normalised ratio increased [None]
  - Small intestinal obstruction [None]
  - Clostridium difficile infection [None]

NARRATIVE: CASE EVENT DATE: 20170406
